FAERS Safety Report 25412861 (Version 4)
Quarter: 2025Q2

REPORT INFORMATION
  Report Type: Spontaneous
  Country: PL (occurrence: PL)
  Receive Date: 20250609
  Receipt Date: 20250625
  Transmission Date: 20250716
  Serious: Yes (Other)
  Sender: NOVARTIS
  Company Number: PL-002147023-NVSC2025PL091313

PATIENT
  Age: 41 Year
  Sex: Female

DRUGS (2)
  1. CYCLOSPORINE [Suspect]
     Active Substance: CYCLOSPORINE
     Indication: Product used for unknown indication
     Route: 065
  2. METHOTREXATE [Suspect]
     Active Substance: METHOTREXATE
     Indication: Product used for unknown indication
     Route: 065

REACTIONS (9)
  - Vascular graft infection [Unknown]
  - Psychotic disorder [Unknown]
  - Clostridium difficile infection [Unknown]
  - Diabetes mellitus [Unknown]
  - Graft versus host disease [Unknown]
  - Gastrointestinal inflammation [Unknown]
  - Skin lesion [Unknown]
  - Hypertension [Unknown]
  - Condition aggravated [Unknown]
